FAERS Safety Report 14707663 (Version 2)
Quarter: 2018Q2

REPORT INFORMATION
  Report Type: Spontaneous
  Country: US (occurrence: US)
  Receive Date: 20180403
  Receipt Date: 20180525
  Transmission Date: 20180711
  Serious: No
  Sender: FDA-Public Use
  Company Number: US-ELI_LILLY_AND_COMPANY-US201804000766

PATIENT
  Sex: Male

DRUGS (6)
  1. LANTUS [Suspect]
     Active Substance: INSULIN GLARGINE
     Dosage: 45 U, DAILY
     Route: 065
  2. HUMALOG [Suspect]
     Active Substance: INSULIN LISPRO
     Indication: TYPE 2 DIABETES MELLITUS
     Dosage: UNK UNK, UNKNOWN
     Route: 065
  3. LANTUS [Suspect]
     Active Substance: INSULIN GLARGINE
     Dosage: 22 U, EACH EVENING
     Route: 065
     Dates: start: 20180420
  4. LANTUS [Suspect]
     Active Substance: INSULIN GLARGINE
     Dosage: 22 U, EACH MORNING
     Route: 065
     Dates: start: 20180420
  5. HUMALOG [Suspect]
     Active Substance: INSULIN LISPRO
     Dosage: UNK UNK, UNKNOWN
     Route: 058
  6. LANTUS [Suspect]
     Active Substance: INSULIN GLARGINE
     Indication: TYPE 2 DIABETES MELLITUS
     Dosage: 40 U, DAILY
     Route: 065

REACTIONS (3)
  - Incorrect dose administered [Unknown]
  - Blood glucose increased [Unknown]
  - Diabetes mellitus [Unknown]
